FAERS Safety Report 24267857 (Version 1)
Quarter: 2024Q3

REPORT INFORMATION
  Report Type: Spontaneous
  Country: CA (occurrence: CA)
  Receive Date: 20240830
  Receipt Date: 20240830
  Transmission Date: 20241016
  Serious: Yes (Hospitalization)
  Sender: SANDOZ
  Company Number: CA-MLMSERVICE-20240719-PI137468-00206-1

PATIENT
  Age: 4 Decade
  Sex: Female

DRUGS (8)
  1. CLOZAPINE [Suspect]
     Active Substance: CLOZAPINE
     Indication: Schizoaffective disorder
     Dosage: ALTERNATING DOSES OF 500/525 MG/DAY
     Route: 065
  2. CLOZAPINE [Suspect]
     Active Substance: CLOZAPINE
     Dosage: ALTERNATING DOSES OF 500/525 MG/DAY
     Route: 065
  3. CLOZAPINE [Suspect]
     Active Substance: CLOZAPINE
     Dosage: MAXIMUM DOSE
     Route: 065
  4. CLOZAPINE [Suspect]
     Active Substance: CLOZAPINE
     Dosage: ATTEMPTS TO DOSE REDUCTION
     Route: 065
  5. LORAZEPAM [Suspect]
     Active Substance: LORAZEPAM
     Indication: Schizoaffective disorder
     Dosage: 1.000MG TID
     Route: 065
  6. PERPHENAZINE [Suspect]
     Active Substance: PERPHENAZINE
     Indication: Schizoaffective disorder
     Dosage: UNK
     Route: 065
  7. QUETIAPINE [Suspect]
     Active Substance: QUETIAPINE
     Indication: Schizoaffective disorder
     Dosage: UNK
     Route: 065
  8. SERTRALINE HYDROCHLORIDE [Suspect]
     Active Substance: SERTRALINE HYDROCHLORIDE
     Indication: Schizoaffective disorder
     Dosage: 125.000MG QD
     Route: 065

REACTIONS (5)
  - Dyskinesia [Recovering/Resolving]
  - Parkinsonism [Recovering/Resolving]
  - Dystonia [Recovering/Resolving]
  - Myoclonus [Recovering/Resolving]
  - Tardive dyskinesia [Recovering/Resolving]
